FAERS Safety Report 4678001-8 (Version None)
Quarter: 2005Q2

REPORT INFORMATION
  Report Type: 
  Country: None (occurrence: None)
  Receive Date: 20050531
  Receipt Date: 20050525
  Transmission Date: 20051028
  Serious: Yes (Life-Threatening)
  Sender: FDA-Public Use
  Company Number: 2005AP03041

PATIENT
  Age: 79 Year
  Sex: Male

DRUGS (2)
  1. CARBOCAINE [Suspect]
     Indication: LOCAL ANAESTHESIA
     Route: 008
  2. CARBOCAINE [Suspect]
     Route: 008

REACTIONS (2)
  - LOSS OF CONSCIOUSNESS [None]
  - SHOCK [None]
